FAERS Safety Report 8271350-6 (Version None)
Quarter: 2012Q2

REPORT INFORMATION
  Report Type: 
  Country: None (occurrence: None)
  Receive Date: 20120410
  Receipt Date: 20120404
  Transmission Date: 20120825
  Serious: Yes (Hospitalization)
  Sender: FDA-Public Use
  Company Number: NO-PFIZER INC-2012022347

PATIENT
  Age: 24 Year
  Sex: Male

DRUGS (5)
  1. ZIPRASIDONE HYDROCHLORIDE [Suspect]
     Dosage: 20 MG, UNK
  2. EFFEXOR [Concomitant]
     Indication: DEPRESSIVE SYMPTOM
     Dosage: 150 MG, 1X/DAY IN THE MORNING
     Dates: start: 20050101
  3. ZIPRASIDONE HYDROCHLORIDE [Suspect]
     Indication: PSYCHOTIC DISORDER
     Dosage: 40 MG, UNK
     Dates: start: 20050101
  4. ZOPICLONE [Concomitant]
     Indication: INSOMNIA
     Dosage: 5 MG UP TO TWICE DAILY, AS NEEDED
  5. SOLIAN [Concomitant]
     Indication: PSYCHOTIC DISORDER
     Dosage: 200 MG, 1X/DAY IN THE MORNING
     Dates: start: 20050101

REACTIONS (11)
  - HYPERHIDROSIS [None]
  - FEELING ABNORMAL [None]
  - HEART RATE INCREASED [None]
  - RESPIRATORY DISORDER [None]
  - FREQUENT BOWEL MOVEMENTS [None]
  - MUSCLE SPASMS [None]
  - CHILLS [None]
  - WITHDRAWAL SYNDROME [None]
  - BALANCE DISORDER [None]
  - INSOMNIA [None]
  - WHITE BLOOD CELL COUNT DECREASED [None]
